FAERS Safety Report 22608811 (Version 1)
Quarter: 2023Q2

REPORT INFORMATION
  Report Type: Spontaneous
  Country: US (occurrence: US)
  Receive Date: 20230616
  Receipt Date: 20230616
  Transmission Date: 20230722
  Serious: Yes (Other)
  Sender: FDA-Public Use
  Company Number: US-AUROBINDO-AUR-APL-2023-042165

PATIENT
  Age: 42 Year
  Sex: Female

DRUGS (1)
  1. KETAMINE HYDROCHLORIDE [Suspect]
     Active Substance: KETAMINE HYDROCHLORIDE
     Indication: Product used for unknown indication
     Dosage: UNK
     Route: 065

REACTIONS (4)
  - Hydronephrosis [Recovered/Resolved]
  - Chronic kidney disease [Recovered/Resolved]
  - Cholangitis sclerosing [Not Recovered/Not Resolved]
  - Drug abuse [Unknown]
